FAERS Safety Report 6606467-2 (Version None)
Quarter: 2010Q1

REPORT INFORMATION
  Report Type: 
  Country: None (occurrence: None)
  Receive Date: 20100226
  Receipt Date: 20100216
  Transmission Date: 20100710
  Serious: Yes (Other)
  Sender: FDA-Public Use
  Company Number: PHHY2010MX08961

PATIENT
  Age: 75 Year
  Sex: Female

DRUGS (1)
  1. DIOVAN [Suspect]
     Indication: HYPERTENSION
     Dosage: 80 MG, UNK
     Dates: start: 20100201

REACTIONS (9)
  - ASTHENIA [None]
  - FATIGUE [None]
  - HEARING IMPAIRED [None]
  - MOOD ALTERED [None]
  - NERVOUS SYSTEM DISORDER [None]
  - PAIN IN EXTREMITY [None]
  - POLLAKIURIA [None]
  - RENAL PAIN [None]
  - VOCAL CORD DISORDER [None]
